FAERS Safety Report 10783797 (Version 1)
Quarter: 2015Q1

REPORT INFORMATION
  Report Type: Spontaneous
  Country: US (occurrence: US)
  Receive Date: 20150210
  Receipt Date: 20150210
  Transmission Date: 20150721
  Serious: No
  Sender: FDA-Public Use
  Company Number: US-BAYER-2015-014584

PATIENT
  Sex: Female

DRUGS (2)
  1. MIDOL [Suspect]
     Active Substance: IBUPROFEN
     Indication: MENSTRUAL DISORDER
     Dosage: UNK
  2. ALEVE [Suspect]
     Active Substance: NAPROXEN SODIUM
     Indication: MENSTRUAL DISORDER
     Dosage: UNK

REACTIONS (2)
  - Drug ineffective [None]
  - Therapeutic response unexpected [None]
